FAERS Safety Report 20765475 (Version 1)
Quarter: 2022Q2

REPORT INFORMATION
  Report Type: Spontaneous
  Country: US (occurrence: US)
  Receive Date: 20220428
  Receipt Date: 20220428
  Transmission Date: 20220721
  Serious: No
  Sender: FDA-Public Use
  Company Number: US-SA-SAC20220425001447

PATIENT
  Sex: Male

DRUGS (5)
  1. DUPIXENT [Suspect]
     Active Substance: DUPILUMAB
     Indication: Crohn^s disease
     Dosage: 300 MG, QOW
     Route: 058
  2. DUPIXENT [Suspect]
     Active Substance: DUPILUMAB
     Indication: Dermatitis atopic
  3. DUPIXENT [Suspect]
     Active Substance: DUPILUMAB
     Indication: Illness
  4. HUMIRA [Concomitant]
     Active Substance: ADALIMUMAB
  5. TRAZODONE [Concomitant]
     Active Substance: TRAZODONE HYDROCHLORIDE

REACTIONS (3)
  - Eczema [Unknown]
  - Injection site bruising [Unknown]
  - Product use in unapproved indication [Unknown]
